FAERS Safety Report 22009075 (Version 2)
Quarter: 2023Q2

REPORT INFORMATION
  Report Type: Spontaneous
  Country: US (occurrence: US)
  Receive Date: 20230220
  Receipt Date: 20230421
  Transmission Date: 20230721
  Serious: No
  Sender: FDA-Public Use
  Company Number: US-Y-MABS THERAPEUTICS, INC.-SPO2023-US-001069

PATIENT

DRUGS (8)
  1. DANYELZA [Suspect]
     Active Substance: NAXITAMAB-GQGK
     Indication: Neuroblastoma recurrent
     Dosage: CYCLE 1, DOSE 1
     Route: 042
  2. DANYELZA [Suspect]
     Active Substance: NAXITAMAB-GQGK
     Dosage: CYCLE UNKNOWN, DOSE 1 (DAY 2, STEP-UP PROTOCOL)
     Route: 042
  3. DANYELZA [Suspect]
     Active Substance: NAXITAMAB-GQGK
     Dosage: CYCLE UNKNOWN, DOSE 2 (DAY 4, STEP-UP PROTOCOL)
     Route: 042
  4. DANYELZA [Suspect]
     Active Substance: NAXITAMAB-GQGK
     Dosage: CYCLE UNKNOWN, DOSE 3 (DAY 9, STEP-UP PROTOCOL)
     Route: 042
  5. DANYELZA [Suspect]
     Active Substance: NAXITAMAB-GQGK
     Dosage: CYCLE UNKNOWN, DOSE 4 (DAY 11, STEP-UP PROTOCOL)
     Route: 042
  6. IRINOTECAN [Concomitant]
     Active Substance: IRINOTECAN
  7. TEMOZOLOMIDE [Concomitant]
     Active Substance: TEMOZOLOMIDE
  8. VINCRISTINE [Concomitant]
     Active Substance: VINCRISTINE
     Dosage: UNK

REACTIONS (3)
  - Blood alkaline phosphatase increased [Unknown]
  - Rash [Unknown]
  - Off label use [Recovered/Resolved]
